FAERS Safety Report 5372042-3 (Version None)
Quarter: 2007Q2

REPORT INFORMATION
  Report Type: 
  Country: None (occurrence: None)
  Receive Date: 20070625
  Receipt Date: 20070611
  Transmission Date: 20071010
  Serious: Yes (Hospitalization)
  Sender: FDA-Public Use
  Company Number: B0475756A

PATIENT
  Age: 36 Year
  Sex: Female

DRUGS (7)
  1. PAROXETINE HYDROCHLORIDE [Suspect]
     Indication: DEPRESSION
  2. BUSPIRONE (FORMULATION UNKNOWN) (BUSPIRONE) [Suspect]
  3. IRON SUPPLEMENTS TABLET (IRON SUPPLEMENTS) [Suspect]
     Indication: ANAEMIA
     Dosage: ORAL
     Route: 048
  4. PINDOLOL [Suspect]
     Indication: HYPERTENSION
     Dosage: 10 MG/ PER DAY
  5. VENOFER [Suspect]
     Indication: ANAEMIA
  6. CEFADROXIL [Suspect]
     Dosage: 1 GRAM(S) / SEE DOSAGE TEXT
  7. DESMOPRESSIN ACETATE [Suspect]

REACTIONS (15)
  - ACTIVATED PARTIAL THROMBOPLASTIN TIME PROLONGED [None]
  - ANAEMIA OF PREGNANCY [None]
  - ANTEPARTUM HAEMORRHAGE [None]
  - BLEEDING TIME PROLONGED [None]
  - CAESAREAN SECTION [None]
  - DRUG EXPOSURE DURING PREGNANCY [None]
  - EPISTAXIS [None]
  - HAEMORRHAGIC DIATHESIS [None]
  - NAUSEA [None]
  - PLATELET AGGREGATION DECREASED [None]
  - PRE-ECLAMPSIA [None]
  - PREGNANCY INDUCED HYPERTENSION [None]
  - PROTEINURIA [None]
  - THROMBOCYTOPENIA [None]
  - VOMITING [None]
